FAERS Safety Report 19670440 (Version 1)
Quarter: 2021Q3

REPORT INFORMATION
  Report Type: Spontaneous
  Country: ES (occurrence: ES)
  Receive Date: 20210806
  Receipt Date: 20210806
  Transmission Date: 20211014
  Serious: Yes (Death, Other)
  Sender: FDA-Public Use
  Company Number: ES-SLATE RUN PHARMACEUTICALS-21ES000614

PATIENT

DRUGS (32)
  1. VALGANCICLOVIR. [Suspect]
     Active Substance: VALGANCICLOVIR
     Indication: ENCEPHALITIS CYTOMEGALOVIRUS
  2. IMMUNOGLOBULIN I.V [Suspect]
     Active Substance: HUMAN IMMUNOGLOBULIN G
     Indication: PNEUMONIA CYTOMEGALOVIRAL
     Route: 042
  3. VALGANCICLOVIR. [Suspect]
     Active Substance: VALGANCICLOVIR
     Indication: CYTOMEGALOVIRUS COLITIS
  4. CIDOFOVIR. [Suspect]
     Active Substance: CIDOFOVIR
     Indication: ENCEPHALITIS CYTOMEGALOVIRUS
  5. CIDOFOVIR. [Suspect]
     Active Substance: CIDOFOVIR
     Indication: CYTOMEGALOVIRUS CHORIORETINITIS
  6. LEFLUNOMIDE. [Suspect]
     Active Substance: LEFLUNOMIDE
     Indication: ENCEPHALITIS CYTOMEGALOVIRUS
  7. IMMUNOGLOBULIN I.V [Suspect]
     Active Substance: HUMAN IMMUNOGLOBULIN G
     Indication: CYTOMEGALOVIRUS COLITIS
  8. IMMUNOGLOBULIN I.V [Suspect]
     Active Substance: HUMAN IMMUNOGLOBULIN G
     Indication: CYTOMEGALOVIRUS CHORIORETINITIS
  9. GANCICLOVIR USP [Suspect]
     Active Substance: GANCICLOVIR
     Indication: PNEUMONIA CYTOMEGALOVIRAL
     Dosage: UNK
  10. VALGANCICLOVIR. [Suspect]
     Active Substance: VALGANCICLOVIR
     Indication: PNEUMONIA CYTOMEGALOVIRAL
  11. FOSCARNET [Suspect]
     Active Substance: FOSCARNET
     Indication: CYTOMEGALOVIRUS COLITIS
  12. LEFLUNOMIDE. [Suspect]
     Active Substance: LEFLUNOMIDE
     Indication: PNEUMONIA CYTOMEGALOVIRAL
  13. RITUXIMAB. [Suspect]
     Active Substance: RITUXIMAB
     Indication: PNEUMONIA CYTOMEGALOVIRAL
  14. RITUXIMAB. [Suspect]
     Active Substance: RITUXIMAB
     Indication: CYTOMEGALOVIRUS COLITIS
  15. FOSCARNET [Suspect]
     Active Substance: FOSCARNET
     Indication: ENCEPHALITIS CYTOMEGALOVIRUS
  16. CIDOFOVIR. [Suspect]
     Active Substance: CIDOFOVIR
     Indication: PNEUMONIA CYTOMEGALOVIRAL
  17. FOSCARNET [Suspect]
     Active Substance: FOSCARNET
     Indication: PNEUMONIA CYTOMEGALOVIRAL
  18. LEFLUNOMIDE. [Suspect]
     Active Substance: LEFLUNOMIDE
     Indication: CYTOMEGALOVIRUS COLITIS
  19. RITUXIMAB. [Suspect]
     Active Substance: RITUXIMAB
     Indication: CYTOMEGALOVIRUS CHORIORETINITIS
  20. GANCICLOVIR USP [Suspect]
     Active Substance: GANCICLOVIR
     Indication: CYTOMEGALOVIRUS CHORIORETINITIS
  21. CIDOFOVIR. [Suspect]
     Active Substance: CIDOFOVIR
     Indication: CYTOMEGALOVIRUS COLITIS
  22. VALGANCICLOVIR. [Suspect]
     Active Substance: VALGANCICLOVIR
     Indication: CYTOMEGALOVIRUS CHORIORETINITIS
  23. FOSCARNET [Suspect]
     Active Substance: FOSCARNET
     Indication: CYTOMEGALOVIRUS CHORIORETINITIS
  24. ACYCLOVIR [ACICLOVIR SODIUM] [Suspect]
     Active Substance: ACYCLOVIR
     Indication: PNEUMONIA CYTOMEGALOVIRAL
  25. ACYCLOVIR [ACICLOVIR SODIUM] [Suspect]
     Active Substance: ACYCLOVIR
     Indication: ENCEPHALITIS CYTOMEGALOVIRUS
  26. ACYCLOVIR [ACICLOVIR SODIUM] [Suspect]
     Active Substance: ACYCLOVIR
     Indication: CYTOMEGALOVIRUS CHORIORETINITIS
  27. IMMUNOGLOBULIN I.V [Suspect]
     Active Substance: HUMAN IMMUNOGLOBULIN G
     Indication: ENCEPHALITIS CYTOMEGALOVIRUS
  28. RITUXIMAB. [Suspect]
     Active Substance: RITUXIMAB
     Indication: ENCEPHALITIS CYTOMEGALOVIRUS
  29. GANCICLOVIR USP [Suspect]
     Active Substance: GANCICLOVIR
     Indication: CYTOMEGALOVIRUS COLITIS
  30. GANCICLOVIR USP [Suspect]
     Active Substance: GANCICLOVIR
     Indication: ENCEPHALITIS CYTOMEGALOVIRUS
  31. LEFLUNOMIDE. [Suspect]
     Active Substance: LEFLUNOMIDE
     Indication: CYTOMEGALOVIRUS CHORIORETINITIS
  32. ACYCLOVIR [ACICLOVIR SODIUM] [Suspect]
     Active Substance: ACYCLOVIR
     Indication: CYTOMEGALOVIRUS COLITIS

REACTIONS (5)
  - Drug ineffective for unapproved indication [Unknown]
  - Organ failure [Unknown]
  - Off label use [Unknown]
  - Cytomegalovirus infection [Fatal]
  - Hepatotoxicity [Unknown]
